FAERS Safety Report 12392846 (Version 2)
Quarter: 2016Q3

REPORT INFORMATION
  Report Type: Spontaneous
  Country: DE (occurrence: DE)
  Receive Date: 20160523
  Receipt Date: 20160706
  Transmission Date: 20161109
  Serious: Yes (Life-Threatening, Other)
  Sender: FDA-Public Use
  Company Number: DE-AMGEN-DEUSP2016063347

PATIENT
  Age: 65 Year
  Sex: Female
  Weight: 58 kg

DRUGS (2)
  1. PREDNISOLONE. [Suspect]
     Active Substance: PREDNISOLONE
     Indication: CHRONIC OBSTRUCTIVE PULMONARY DISEASE
     Dosage: UNK
     Route: 065
     Dates: start: 20160318, end: 20160331
  2. PROLIA [Suspect]
     Active Substance: DENOSUMAB
     Indication: OSTEOPOROSIS
     Dosage: UNK, Q6MO
     Route: 058
     Dates: start: 20101122, end: 20150330

REACTIONS (3)
  - Thoracic vertebral fracture [Recovering/Resolving]
  - Lumbar vertebral fracture [Recovering/Resolving]
  - Chronic obstructive pulmonary disease [Unknown]

NARRATIVE: CASE EVENT DATE: 20160215
